FAERS Safety Report 15306112 (Version 8)
Quarter: 2019Q1

REPORT INFORMATION
  Report Type: Spontaneous
  Country: US (occurrence: US)
  Receive Date: 20180822
  Receipt Date: 20190321
  Transmission Date: 20190417
  Serious: No
  Sender: FDA-Public Use
  Company Number: US-PFIZER INC-2018128677

PATIENT
  Age: 61 Year
  Sex: Female

DRUGS (4)
  1. LYRICA [Suspect]
     Active Substance: PREGABALIN
     Indication: POLYNEUROPATHY
     Dosage: 300 MG, 2X/DAY
     Route: 048
  2. LYRICA [Suspect]
     Active Substance: PREGABALIN
     Indication: FIBROMYALGIA
  3. LYRICA [Suspect]
     Active Substance: PREGABALIN
     Indication: NEUROPATHY PERIPHERAL
  4. LYRICA [Suspect]
     Active Substance: PREGABALIN
     Indication: MONONEUROPATHY

REACTIONS (6)
  - Loss of personal independence in daily activities [Unknown]
  - Frustration tolerance decreased [Unknown]
  - Skin disorder [Unknown]
  - Pain [Unknown]
  - Ill-defined disorder [Unknown]
  - Withdrawal syndrome [Unknown]
